FAERS Safety Report 22072994 (Version 1)
Quarter: 2023Q1

REPORT INFORMATION
  Report Type: Spontaneous
  Country: DK (occurrence: None)
  Receive Date: 20230308
  Receipt Date: 20230308
  Transmission Date: 20230417
  Serious: Yes (Death)
  Sender: FDA-Public Use
  Company Number: DK-ROCHE-3300786

PATIENT
  Age: 51 Year
  Sex: Male
  Weight: 125 kg

DRUGS (2)
  1. CAPECITABINE [Suspect]
     Active Substance: CAPECITABINE
     Indication: Chemotherapy
     Route: 048
     Dates: start: 20230106, end: 20230120
  2. OXALIPLATIN [Suspect]
     Active Substance: OXALIPLATIN
     Indication: Chemotherapy
     Route: 042
     Dates: start: 20230106, end: 20230106

REACTIONS (3)
  - Disorientation [Unknown]
  - Hepatic failure [Fatal]
  - Pneumatosis intestinalis [Fatal]

NARRATIVE: CASE EVENT DATE: 20230124
